FAERS Safety Report 5442882-0 (Version None)
Quarter: 2007Q3

REPORT INFORMATION
  Report Type: 
  Country: None (occurrence: None)
  Receive Date: 20070831
  Receipt Date: 20070831
  Transmission Date: 20080115
  Serious: No
  Sender: FDA-Public Use
  Company Number: None

PATIENT
  Sex: Female
  Weight: 87.0906 kg

DRUGS (1)
  1. LEVOTHYROXINE SODIUM [Suspect]
     Indication: POST PROCEDURAL HYPOTHYROIDISM
     Dosage: 0.1 MG DAILY PO
     Route: 048
     Dates: start: 20070718, end: 20070822

REACTIONS (4)
  - FEELING JITTERY [None]
  - HOT FLUSH [None]
  - INSOMNIA [None]
  - PHARMACEUTICAL PRODUCT COMPLAINT [None]
